FAERS Safety Report 7879869-4 (Version None)
Quarter: 2011Q4

REPORT INFORMATION
  Report Type: 
  Country: None (occurrence: None)
  Receive Date: 20111101
  Receipt Date: 20111018
  Transmission Date: 20120403
  Serious: Yes (Hospitalization)
  Sender: FDA-Public Use
  Company Number: KR-ROCHE-1005373

PATIENT
  Age: 65 Year
  Sex: Male

DRUGS (5)
  1. LEUCOVORIN CALCIUM [Concomitant]
     Indication: COLORECTAL CANCER
     Dates: start: 20090624
  2. FLUOROURACIL [Concomitant]
     Indication: COLORECTAL CANCER
     Route: 040
     Dates: start: 20090624
  3. BEVACIZUMAB [Suspect]
     Indication: COLORECTAL CANCER
     Dates: start: 20090624
  4. FLUOROURACIL [Concomitant]
     Dates: start: 20090624
  5. OXALIPLATIN [Concomitant]
     Indication: COLORECTAL CANCER
     Dates: start: 20090624

REACTIONS (1)
  - COLITIS ISCHAEMIC [None]
